FAERS Safety Report 12991828 (Version 2)
Quarter: 2016Q4

REPORT INFORMATION
  Report Type: Spontaneous
  Country: CA (occurrence: CA)
  Receive Date: 20161201
  Receipt Date: 20161219
  Transmission Date: 20170207
  Serious: Yes (Other)
  Sender: FDA-Public Use
  Company Number: CA-009507513-1611CAN012954

PATIENT
  Age: 71 Year
  Sex: Male
  Weight: 70 kg

DRUGS (4)
  1. VANCOMYCIN [Concomitant]
     Active Substance: VANCOMYCIN
     Indication: CLOSTRIDIUM DIFFICILE INFECTION
     Dosage: 125 MG PO QID
     Route: 048
     Dates: start: 20161116
  2. PROBIOTICS (UNSPECIFIED) [Concomitant]
     Active Substance: PROBIOTICS NOS
  3. VITAMINS (UNSPECIFIED) [Concomitant]
     Active Substance: VITAMINS
  4. POSACONAZOLE [Suspect]
     Active Substance: POSACONAZOLE
     Indication: BRONCHOPULMONARY ASPERGILLOSIS
     Dosage: 300 MG TABLETS PO DAILY
     Route: 048
     Dates: start: 20160928, end: 20161125

REACTIONS (8)
  - Liver function test increased [Recovered/Resolved]
  - Oedema peripheral [Recovering/Resolving]
  - Red cell distribution width increased [Unknown]
  - Sinus bradycardia [Unknown]
  - Mean cell volume increased [Unknown]
  - Negative cardiac inotropic effect [Not Recovered/Not Resolved]
  - Cardiac failure [Not Recovered/Not Resolved]
  - Ventricular hypertrophy [Unknown]

NARRATIVE: CASE EVENT DATE: 201611
